FAERS Safety Report 12943145 (Version 1)
Quarter: 2016Q4

REPORT INFORMATION
  Report Type: Report from Study
  Country: JP (occurrence: JP)
  Receive Date: 20161115
  Receipt Date: 20161115
  Transmission Date: 20170207
  Serious: Yes (Death, Life-Threatening, Hospitalization, Other)
  Sender: FDA-Public Use
  Company Number: JP-SA-2016SA205909

PATIENT
  Age: 34 Year
  Sex: Female
  Weight: 43.2 kg

DRUGS (15)
  1. PROGRAF [Suspect]
     Active Substance: TACROLIMUS\TACROLIMUS ANHYDROUS
     Indication: PROPHYLAXIS AGAINST GRAFT VERSUS HOST DISEASE
     Route: 065
     Dates: start: 20120529, end: 20120727
  2. ALKERAN [Suspect]
     Active Substance: MELPHALAN
     Route: 065
  3. HEPARIN SODIUM. [Concomitant]
     Active Substance: HEPARIN SODIUM
     Indication: PROPHYLAXIS
     Dates: start: 20120521, end: 20120612
  4. CEFOTAXIME [Concomitant]
     Active Substance: CEFOTAXIME SODIUM
     Indication: PNEUMONIA
     Dosage: I.V./I.M.
     Dates: start: 20120613, end: 20120702
  5. CARBENIN [Concomitant]
     Active Substance: BETAMIPRON\PANIPENEM
     Indication: PNEUMONIA
     Dosage: INTRAVENOUS?DRIP INFUSION
     Dates: start: 20120608, end: 20120612
  6. VANCOMYCIN HYDROCHLORIDE. [Concomitant]
     Active Substance: VANCOMYCIN HYDROCHLORIDE
     Indication: PNEUMONIA
     Dosage: INTRAVENOUS?INFUSION
     Dates: start: 20120612, end: 20120616
  7. AMBISOME [Concomitant]
     Active Substance: AMPHOTERICIN B
     Indication: INFECTION PROPHYLAXIS
     Dosage: I.V. INFUSION?50 MG
     Route: 042
     Dates: start: 20120327, end: 20120611
  8. PRIDOL [Concomitant]
     Active Substance: METHYLPREDNISOLONE SODIUM SUCCINATE
     Indication: PROPHYLAXIS
     Dates: start: 20120529, end: 20120805
  9. NEUTROGIN [Concomitant]
     Active Substance: LENOGRASTIM
     Indication: NEUTROPENIA
     Dates: start: 20120604, end: 20120805
  10. THYMOGLOBULINE [Suspect]
     Active Substance: LAPINE T-LYMPHOCYTE IMMUNE GLOBULIN
     Indication: BONE MARROW CONDITIONING REGIMEN
     Route: 042
     Dates: start: 20120529, end: 20120529
  11. ELASPOL [Concomitant]
     Active Substance: SIVELESTAT SODIUM
     Indication: PNEUMONIA
     Dates: start: 20120610, end: 20120618
  12. KENKETSU ALBUMIN [Concomitant]
     Indication: HYPOALBUMINAEMIA
     Dates: start: 20120602, end: 20120723
  13. THYMOGLOBULINE [Suspect]
     Active Substance: LAPINE T-LYMPHOCYTE IMMUNE GLOBULIN
     Indication: BONE MARROW CONDITIONING REGIMEN
     Route: 042
     Dates: start: 20120529, end: 20120530
  14. ETOPOSIDE. [Suspect]
     Active Substance: ETOPOSIDE
     Route: 065
  15. URSO [Concomitant]
     Active Substance: URSODIOL
     Indication: PROPHYLAXIS
     Route: 048
     Dates: start: 20120519, end: 20120614

REACTIONS (9)
  - Jaundice [Not Recovered/Not Resolved]
  - Renal failure [Not Recovered/Not Resolved]
  - Melaena [Not Recovered/Not Resolved]
  - Febrile neutropenia [Recovered/Resolved]
  - Thrombotic microangiopathy [Not Recovered/Not Resolved]
  - Graft versus host disease [Fatal]
  - Cytomegalovirus viraemia [Not Recovered/Not Resolved]
  - Cardiac failure congestive [Not Recovered/Not Resolved]
  - Bacterial sepsis [Not Recovered/Not Resolved]

NARRATIVE: CASE EVENT DATE: 20120530
